FAERS Safety Report 4318798-X (Version None)
Quarter: 2004Q1

REPORT INFORMATION
  Report Type: 
  Country: None (occurrence: None)
  Receive Date: 20040318
  Receipt Date: 20040304
  Transmission Date: 20041129
  Serious: Yes (Death)
  Sender: FDA-Public Use
  Company Number: CH-GLAXOSMITHKLINE-B0325768A

PATIENT
  Age: 57 Year
  Sex: Female
  Weight: 47 kg

DRUGS (9)
  1. DEROXAT [Suspect]
     Indication: DEPRESSION
     Dosage: 20MG PER DAY
     Route: 048
     Dates: start: 19990101, end: 20040208
  2. VELCADE [Suspect]
     Indication: MULTIPLE MYELOMA
     Dosage: 3.5MG PER DAY
     Route: 042
     Dates: start: 20040130, end: 20040206
  3. VORICONAZOLE [Suspect]
     Indication: PYREXIA
     Dosage: 200MG PER DAY
     Route: 042
     Dates: start: 20040203, end: 20040206
  4. NEXIUM [Suspect]
     Indication: PROPHYLAXIS
     Dosage: 40MG PER DAY
     Route: 048
     Dates: start: 20040122, end: 20040208
  5. BELOC-ZOK [Suspect]
     Indication: HYPERTENSION
     Dosage: 100MG PER DAY
     Route: 048
     Dates: end: 20040206
  6. VALTREX [Concomitant]
     Indication: HERPES SIMPLEX
     Dosage: 500MG TWICE PER DAY
     Route: 048
     Dates: start: 20030201
  7. RECORMON [Concomitant]
     Indication: ANAEMIA
     Dosage: 1000000IU WEEKLY
     Route: 042
  8. ZYLORIC [Concomitant]
     Dosage: 300MG PER DAY
     Route: 048
     Dates: start: 20040130
  9. DOMPERIDONE [Concomitant]
     Indication: NAUSEA
     Dosage: 10MG PER DAY
     Route: 048

REACTIONS (21)
  - ANURIA [None]
  - ASPARTATE AMINOTRANSFERASE INCREASED [None]
  - CHILLS [None]
  - COMA [None]
  - CONDITION AGGRAVATED [None]
  - DISSEMINATED INTRAVASCULAR COAGULATION [None]
  - DRUG INTERACTION [None]
  - ELECTROLYTE IMBALANCE [None]
  - GAMMA-GLUTAMYLTRANSFERASE INCREASED [None]
  - HAEMOGLOBIN DECREASED [None]
  - HEPATIC ENZYME INCREASED [None]
  - HEPATIC FUNCTION ABNORMAL [None]
  - HYPOTENSION [None]
  - LUNG DISORDER [None]
  - METABOLIC ACIDOSIS [None]
  - OVERDOSE [None]
  - PYREXIA [None]
  - RENAL FAILURE CHRONIC [None]
  - SOMNOLENCE [None]
  - THROMBOCYTOPENIA [None]
  - VENTRICULAR FIBRILLATION [None]
